FAERS Safety Report 9691852 (Version 1)
Quarter: 2013Q4

REPORT INFORMATION
  Report Type: Spontaneous
  Country: BR (occurrence: BR)
  Receive Date: 20131117
  Receipt Date: 20131117
  Transmission Date: 20140711
  Serious: Yes (Hospitalization)
  Sender: FDA-Public Use
  Company Number: BR-ASTRAZENECA-2013SE82208

PATIENT
  Age: 53 Year
  Sex: Male
  Weight: 89.6 kg

DRUGS (4)
  1. CRESTOR [Suspect]
     Indication: BLOOD CHOLESTEROL INCREASED
     Route: 048
     Dates: start: 20131018
  2. ASPIRINA [Concomitant]
     Dates: start: 20131018
  3. NAPRIX [Concomitant]
     Indication: HYPERTENSION
     Dates: start: 2009
  4. SERENATA [Concomitant]
     Indication: DEPRESSION
     Dates: start: 2012

REACTIONS (1)
  - Venous occlusion [Recovered/Resolved]
